FAERS Safety Report 9297602 (Version 1)
Quarter: 2013Q2

REPORT INFORMATION
  Report Type: Spontaneous
  Country: SE (occurrence: SE)
  Receive Date: 20130520
  Receipt Date: 20130520
  Transmission Date: 20140414
  Serious: Yes (Other)
  Sender: FDA-Public Use
  Company Number: PHHY2013SE049280

PATIENT
  Sex: 0

DRUGS (1)
  1. GILENYA [Suspect]
     Dosage: UNK
     Route: 048
     Dates: start: 201302

REACTIONS (2)
  - Vertigo [Recovered/Resolved]
  - Dizziness [Recovered/Resolved]
